FAERS Safety Report 6891167-4 (Version None)
Quarter: 2010Q3

REPORT INFORMATION
  Report Type: 
  Country: None (occurrence: None)
  Receive Date: 20100731
  Receipt Date: 20090616
  Transmission Date: 20110219
  Serious: No
  Sender: FDA-Public Use
  Company Number: US-PFIZER INC-2009191430

PATIENT
  Sex: Male
  Weight: 104.32 kg

DRUGS (1)
  1. LIPITOR [Suspect]
     Dosage: UNK
     Route: 048

REACTIONS (7)
  - BACK PAIN [None]
  - BLOOD GLUCOSE INCREASED [None]
  - MUSCLE SPASMS [None]
  - MYALGIA [None]
  - PAIN IN EXTREMITY [None]
  - RENAL FUNCTION TEST ABNORMAL [None]
  - RENAL PAIN [None]
